FAERS Safety Report 25447418 (Version 1)
Quarter: 2025Q2

REPORT INFORMATION
  Report Type: Spontaneous
  Country: ES (occurrence: ES)
  Receive Date: 20250617
  Receipt Date: 20250617
  Transmission Date: 20250717
  Serious: Yes (Other)
  Sender: AMGEN
  Company Number: ES-AMGEN-ESPSP2025114378

PATIENT

DRUGS (1)
  1. ETANERCEPT [Suspect]
     Active Substance: ETANERCEPT
     Indication: Psoriasis
     Route: 065

REACTIONS (14)
  - Basal cell carcinoma [Unknown]
  - Hypertensive crisis [Unknown]
  - Tinea pedis [Recovered/Resolved]
  - Onychomycosis [Recovered/Resolved]
  - Herpes zoster [Recovered/Resolved]
  - Chest pain [Unknown]
  - Skin discolouration [Unknown]
  - Diarrhoea [Unknown]
  - Drug ineffective [Unknown]
  - Vomiting [Unknown]
  - Nausea [Unknown]
  - Injection site pain [Unknown]
  - Anxiety [Unknown]
  - Arthralgia [Unknown]
